FAERS Safety Report 6269334-2 (Version None)
Quarter: 2009Q3

REPORT INFORMATION
  Report Type: 
  Country: None (occurrence: None)
  Receive Date: 20090715
  Receipt Date: 20090701
  Transmission Date: 20100115
  Serious: Yes (Hospitalization)
  Sender: FDA-Public Use
  Company Number: AR-MYLANLABS-2009S1011710

PATIENT
  Age: 77 Year
  Sex: Female

DRUGS (5)
  1. FLUOXETINE HYDROCHLORIDE [Suspect]
     Route: 048
  2. OMEPRAZOLE [Suspect]
  3. ENALAPRIL MALEATE [Concomitant]
  4. ATENOLOL [Concomitant]
  5. ACETYLSALICYLIC ACID SRT [Concomitant]

REACTIONS (2)
  - DRUG INTERACTION [None]
  - SEROTONIN SYNDROME [None]
